FAERS Safety Report 24871537 (Version 1)
Quarter: 2025Q1

REPORT INFORMATION
  Report Type: Spontaneous
  Country: US (occurrence: US)
  Receive Date: 20250122
  Receipt Date: 20250122
  Transmission Date: 20250408
  Serious: No
  Sender: SANOFI AVENTIS
  Company Number: US-SA-2025SA017963

PATIENT
  Sex: Male

DRUGS (5)
  1. DUPIXENT [Suspect]
     Active Substance: DUPILUMAB
     Indication: Dermatitis atopic
     Dosage: 300 MG, QOW
     Route: 058
     Dates: start: 20211123
  2. ONDANSETRON [Concomitant]
     Active Substance: ONDANSETRON
  3. PREDNISONE [Concomitant]
     Active Substance: PREDNISONE
  4. EPINEPHRINE [Concomitant]
     Active Substance: EPINEPHRINE
  5. PREDNISONE [Concomitant]
     Active Substance: PREDNISONE

REACTIONS (1)
  - Sleep disorder [Not Recovered/Not Resolved]
